FAERS Safety Report 7328833-2 (Version None)
Quarter: 2011Q1

REPORT INFORMATION
  Report Type: 
  Country: None (occurrence: None)
  Receive Date: 20110303
  Receipt Date: 20110228
  Transmission Date: 20110831
  Serious: No
  Sender: FDA-Public Use
  Company Number: US-PFIZER INC-2011043235

PATIENT
  Age: 71 Year
  Sex: Female

DRUGS (2)
  1. LIPITOR [Suspect]
     Dosage: 80 MG TABLET ONCE DAILY, LATER CHANGED TO 20 MG TABLETS, 4 DAILY
  2. BIAXIN [Suspect]
     Dosage: UNK

REACTIONS (1)
  - PRODUCT SIZE ISSUE [None]
